FAERS Safety Report 4922373-3 (Version None)
Quarter: 2006Q1

REPORT INFORMATION
  Report Type: 
  Country: None (occurrence: None)
  Receive Date: 20060224
  Receipt Date: 20050921
  Transmission Date: 20060701
  Serious: Yes (Hospitalization, Other)
  Sender: FDA-Public Use
  Company Number: US-MERCK-0509USA03236

PATIENT
  Age: 56 Year
  Sex: Male

DRUGS (11)
  1. VIOXX [Suspect]
     Indication: PAIN
     Route: 048
     Dates: start: 19990101, end: 20010430
  2. VIOXX [Suspect]
     Route: 048
     Dates: start: 20010430, end: 20040930
  3. VIOXX [Suspect]
     Indication: OSTEOARTHRITIS
     Route: 048
     Dates: start: 19990101, end: 20010430
  4. VIOXX [Suspect]
     Route: 048
     Dates: start: 20010430, end: 20040930
  5. ULTRACET [Concomitant]
     Indication: PAIN
     Route: 065
  6. ZESTORETIC [Concomitant]
     Indication: HYPERTENSION
     Route: 048
  7. LIPITOR [Concomitant]
     Indication: HYPERCHOLESTEROLAEMIA
     Route: 048
  8. ZOLOFT [Concomitant]
     Indication: DEPRESSION
     Route: 048
  9. AMBIEN [Concomitant]
     Indication: INSOMNIA
     Route: 048
  10. ASPIRIN [Concomitant]
     Route: 048
  11. NIACIN [Concomitant]
     Route: 065

REACTIONS (17)
  - BACK PAIN [None]
  - BRONCHIAL HYPERACTIVITY [None]
  - CAROTID ARTERY STENOSIS [None]
  - CEREBROVASCULAR ACCIDENT [None]
  - CHEST DISCOMFORT [None]
  - FALL [None]
  - FRACTURED SACRUM [None]
  - HEADACHE [None]
  - HYPERSOMNIA [None]
  - HYPOAESTHESIA [None]
  - LEUKOPENIA [None]
  - PAIN IN EXTREMITY [None]
  - PNEUMONITIS [None]
  - ROTATOR CUFF SYNDROME [None]
  - SLEEP APNOEA SYNDROME [None]
  - TRANSIENT ISCHAEMIC ATTACK [None]
  - WHIPLASH INJURY [None]
